FAERS Safety Report 4655721-2 (Version None)
Quarter: 2005Q2

REPORT INFORMATION
  Report Type: 
  Country: None (occurrence: None)
  Receive Date: 20050505
  Receipt Date: 20050415
  Transmission Date: 20051028
  Serious: Yes (Hospitalization)
  Sender: FDA-Public Use
  Company Number: JP_050406299

PATIENT
  Age: 71 Year
  Sex: Female

DRUGS (6)
  1. EVISTA [Suspect]
     Indication: OSTEOPOROSIS
     Dosage: 60 MG/1 DAY
     Dates: start: 20050222, end: 20050325
  2. LOXONIN (LOXOPROFEN SODIUM) [Concomitant]
  3. MARZULENE S [Concomitant]
  4. FAMOTIDINE [Concomitant]
  5. URSODIOL [Concomitant]
  6. SELBEX (TEPRENONE) [Concomitant]

REACTIONS (7)
  - CONDITION AGGRAVATED [None]
  - DECREASED APPETITE [None]
  - FAECES DISCOLOURED [None]
  - GASTRIC ULCER HAEMORRHAGE [None]
  - HAEMATEMESIS [None]
  - HEPATITIS ALCOHOLIC [None]
  - NAUSEA [None]
